FAERS Safety Report 6398307-4 (Version None)
Quarter: 2009Q4

REPORT INFORMATION
  Report Type: 
  Country: None (occurrence: None)
  Receive Date: 20091013
  Receipt Date: 20091006
  Transmission Date: 20100525
  Serious: Yes (Hospitalization, Disabling)
  Sender: FDA-Public Use
  Company Number: AU-WYE-G04543509

PATIENT
  Age: 22 Year
  Sex: Female
  Weight: 50 kg

DRUGS (3)
  1. PRISTIQ [Suspect]
     Dosage: UNKNOWN
  2. PROZAC [Suspect]
     Dosage: 40MG WHICH WAS INCREASED TO 60MG
  3. DEXAMFETAMINE [Concomitant]
     Indication: ATTENTION DEFICIT/HYPERACTIVITY DISORDER
     Dosage: DOSE WAS INCREASED

REACTIONS (4)
  - BEDRIDDEN [None]
  - DECREASED APPETITE [None]
  - DIZZINESS [None]
  - NAUSEA [None]
